FAERS Safety Report 4604764-3 (Version None)
Quarter: 2005Q1

REPORT INFORMATION
  Report Type: 
  Country: None (occurrence: None)
  Receive Date: 20050217
  Receipt Date: 20041214
  Transmission Date: 20050727
  Serious: No
  Sender: FDA-Public Use
  Company Number: S04-USA-07872-01

PATIENT
  Age: 61 Year
  Sex: Female

DRUGS (7)
  1. NAMENDA [Suspect]
     Indication: COGNITIVE DISORDER
     Dosage: 5 MG QD PO
     Route: 048
     Dates: start: 20041101, end: 20040101
  2. NAMENDA [Suspect]
     Indication: COGNITIVE DISORDER
     Dosage: 10 MG QD PO
     Route: 048
     Dates: start: 20040101, end: 20040101
  3. NAMENDA [Suspect]
     Indication: COGNITIVE DISORDER
     Dosage: 15 MG QD PO
     Route: 048
     Dates: start: 20040101, end: 20040101
  4. NAMENDA [Suspect]
     Indication: COGNITIVE DISORDER
     Dosage: 10 MG BID PO
     Route: 048
     Dates: start: 20040101, end: 20041211
  5. NAMENDA [Suspect]
     Indication: COGNITIVE DISORDER
     Dosage: 15 MG QD PO
     Route: 048
     Dates: start: 20041212
  6. LEVOXYL [Concomitant]
  7. CYTOMEL [Concomitant]

REACTIONS (3)
  - AGGRESSION [None]
  - CONFUSIONAL STATE [None]
  - LETHARGY [None]
